FAERS Safety Report 20200812 (Version 2)
Quarter: 2022Q1

REPORT INFORMATION
  Report Type: Spontaneous
  Country: CZ (occurrence: CZ)
  Receive Date: 20211217
  Receipt Date: 20220314
  Transmission Date: 20220423
  Serious: Yes (Death, Other)
  Sender: FDA-Public Use
  Company Number: CZ-PFIZER INC-202101757387

PATIENT
  Age: 62 Year
  Sex: Female

DRUGS (10)
  1. MYLOTARG [Suspect]
     Active Substance: GEMTUZUMAB OZOGAMICIN
     Indication: Acute myeloid leukaemia
     Dosage: 1ST INDUCTION, 5 MG ON DAYS 1, 4, 7
  2. CYTARABINE [Suspect]
     Active Substance: CYTARABINE
     Indication: Acute myeloid leukaemia
     Dosage: 1ST INDUCTION, D1-7
  3. CYTARABINE [Suspect]
     Active Substance: CYTARABINE
     Dosage: 2ND INDUCTION, D1-5
  4. CYTARABINE [Suspect]
     Active Substance: CYTARABINE
     Dosage: SALVAGE, D1-5
  5. IDARUBICIN HYDROCHLORIDE [Suspect]
     Active Substance: IDARUBICIN HYDROCHLORIDE
     Indication: Acute myeloid leukaemia
     Dosage: 12 MG/M2 D1-5
  6. DAUNORUBICIN [Suspect]
     Active Substance: DAUNORUBICIN
     Indication: Acute myeloid leukaemia
     Dosage: 1ST INDUCTION, 60 MG/M2 ON DAYS 1-3
  7. FLUDARABINE [Suspect]
     Active Substance: FLUDARABINE PHOSPHATE
     Indication: Acute myeloid leukaemia
     Dosage: 30 MG/M2 (DAYS1-5)
  8. HYDROXYUREA [Suspect]
     Active Substance: HYDROXYUREA
     Indication: Acute myeloid leukaemia
     Dosage: UNK
  9. CLADRIBINE [Suspect]
     Active Substance: CLADRIBINE
     Indication: Acute myeloid leukaemia
     Dosage: 5 MG/M2 D1-5
  10. MITOXANTRONE [Suspect]
     Active Substance: MITOXANTRONE HYDROCHLORIDE
     Indication: Acute myeloid leukaemia
     Dosage: 10MG/M2 ON DAYS 1-4

REACTIONS (4)
  - Death [Fatal]
  - Pulmonary mucormycosis [Unknown]
  - Multiple organ dysfunction syndrome [Unknown]
  - Neoplasm progression [Unknown]
